FAERS Safety Report 7967160-7 (Version None)
Quarter: 2011Q4

REPORT INFORMATION
  Report Type: 
  Country: None (occurrence: None)
  Receive Date: 20111208
  Receipt Date: 20111208
  Transmission Date: 20120403
  Serious: No
  Sender: FDA-Public Use
  Company Number: None

PATIENT
  Sex: Female
  Weight: 91.6266 kg

DRUGS (14)
  1. VICTOZA [Concomitant]
  2. SINEMET [Concomitant]
  3. ZOLOFT [Concomitant]
  4. CRESTOR [Concomitant]
  5. NEURONTIN [Concomitant]
  6. METFORMIN HCL [Concomitant]
  7. XANAX [Concomitant]
  8. AMARYL [Concomitant]
  9. NORDITROPIN [Suspect]
     Dosage: 0.1 MG
  10. MILK [Concomitant]
  11. VITAMIN D [Concomitant]
  12. MOBIC [Concomitant]
  13. VITAMIN B-12 [Concomitant]
  14. CARDURA [Concomitant]

REACTIONS (7)
  - PULMONARY THROMBOSIS [None]
  - PYREXIA [None]
  - HYPERHIDROSIS [None]
  - ATRIAL FIBRILLATION [None]
  - UTERINE HAEMORRHAGE [None]
  - POST PROCEDURAL COMPLICATION [None]
  - CHILLS [None]
